FAERS Safety Report 15550823 (Version 1)
Quarter: 2018Q4

REPORT INFORMATION
  Report Type: Spontaneous
  Country: US (occurrence: US)
  Receive Date: 20181025
  Receipt Date: 20181025
  Transmission Date: 20190205
  Serious: Yes (Death)
  Sender: FDA-Public Use
  Company Number: US-LPDUSPRD-20181944

PATIENT
  Sex: Male

DRUGS (8)
  1. NICOTINE REPLACEMENT [Concomitant]
     Dosage: UNKNOWN
     Route: 065
  2. METHADONE [Suspect]
     Active Substance: METHADONE HYDROCHLORIDE
     Dosage: 20 MG, THEN 3 DOSES OF 10 MG
     Route: 048
  3. CHLORDIAZEPOXIDE. [Concomitant]
     Active Substance: CHLORDIAZEPOXIDE
     Dosage: TOTAL OF 200 MG
     Route: 065
  4. HYDROXYZINE [Concomitant]
     Active Substance: HYDROXYZINE HYDROCHLORIDE
     Dosage: TOTAL OF 50 MG
     Route: 065
  5. TRAZODONE [Suspect]
     Active Substance: TRAZODONE HYDROCHLORIDE
     Dosage: TOTAL OF 50 MG
     Route: 065
  6. IBUPROFEN. [Concomitant]
     Active Substance: IBUPROFEN
     Dosage: UNKNOWN
     Route: 065
  7. VITAMIN SUPPLEMENTATION [Concomitant]
     Dosage: UNKNOWN
     Route: 065
  8. ONDANSETRON INJECTION (4420-01) [Suspect]
     Active Substance: ONDANSETRON
     Dosage: 4 MG
     Route: 030

REACTIONS (4)
  - Product use in unapproved indication [Unknown]
  - Electrocardiogram QT prolonged [Fatal]
  - Hypoglycaemia [Fatal]
  - Ventricular tachyarrhythmia [Fatal]
